FAERS Safety Report 8402670-X (Version None)
Quarter: 2012Q2

REPORT INFORMATION
  Report Type: 
  Country: None (occurrence: None)
  Receive Date: 20120601
  Receipt Date: 20120529
  Transmission Date: 20120825
  Serious: Yes (Death, Life-Threatening, Hospitalization)
  Sender: FDA-Public Use
  Company Number: BE-ELI_LILLY_AND_COMPANY-BE201202007877

PATIENT
  Sex: Female
  Weight: 71.5 kg

DRUGS (6)
  1. MOXONIDINE [Concomitant]
     Indication: HYPERTENSION
     Dosage: 0.4 MG, UNK
     Route: 048
  2. SPASMOMEN [Concomitant]
     Indication: ABDOMINAL PAIN
     Dosage: 40 MG, BID
     Route: 048
  3. ACETAMINOPHEN [Concomitant]
     Indication: PAIN
     Dosage: 1 G, TID
     Route: 048
  4. AMLOGAL [Concomitant]
     Indication: HYPERTENSION
     Dosage: 5 MG, UNK
     Route: 048
  5. GEMCITABINE HYDROCHLORIDE [Suspect]
     Indication: PANCREATIC CARCINOMA METASTATIC
     Dosage: 1000 MG/M2, UNK
     Route: 042
     Dates: start: 20120201, end: 20120227
  6. DIAMICRON [Concomitant]
     Indication: HYPERGLYCAEMIA
     Dosage: 60 MG, BID
     Route: 048

REACTIONS (6)
  - FATIGUE [None]
  - ABDOMINAL PAIN [None]
  - PNEUMONIA [None]
  - CONSTIPATION [None]
  - ASTHENIA [None]
  - SEPSIS [None]
